FAERS Safety Report 7718250-5 (Version None)
Quarter: 2011Q3

REPORT INFORMATION
  Report Type: 
  Country: None (occurrence: None)
  Receive Date: 20110830
  Receipt Date: 20110822
  Transmission Date: 20111222
  Serious: Yes (Hospitalization, Other)
  Sender: FDA-Public Use
  Company Number: PHEH2006US11913

PATIENT
  Sex: Female
  Weight: 70.295 kg

DRUGS (47)
  1. AREDIA [Suspect]
  2. TAXOTERE [Concomitant]
  3. OXYCONTIN [Concomitant]
     Dosage: UNK
  4. EPINEPHRINE [Concomitant]
  5. ENALAPRIL MALEATE [Concomitant]
  6. AVANDIA [Concomitant]
  7. NYSTATIN [Concomitant]
  8. ZOMETA [Suspect]
  9. DILAUDID [Concomitant]
  10. GLIPIZIDE [Concomitant]
  11. LISINOPRIL [Concomitant]
  12. ARANESP [Concomitant]
  13. MORPHINE [Concomitant]
     Dosage: 5 MG/ML, UNK
  14. TYLENOL-500 [Concomitant]
     Dosage: 650 MG, UNK
  15. LORATADINE [Concomitant]
  16. XALATAN [Concomitant]
     Dosage: UNK
  17. BYETTA [Concomitant]
  18. MOXIFLOXACIN [Concomitant]
     Dosage: 1GTT
  19. HYDROCODONE BITARTRATE [Concomitant]
     Dosage: UNK
  20. CYCLOBENZAPRINE [Concomitant]
  21. NEURONTIN [Concomitant]
  22. PERCOCET [Concomitant]
  23. DIAMOX SRC [Concomitant]
  24. DOCUSATE [Concomitant]
  25. MORPHINE [Concomitant]
     Dosage: 6 MG, UNK
  26. MORPHINE SULFATE [Concomitant]
     Dosage: 30 MG, UNK
  27. LASIX [Concomitant]
  28. GABAPENTIN [Concomitant]
  29. BIMATOPROST [Concomitant]
  30. TAXOL [Concomitant]
  31. COREG [Concomitant]
  32. ALPHAGAN P [Concomitant]
  33. AMARYL [Concomitant]
  34. CLARITIN [Concomitant]
  35. INSULIN [Concomitant]
  36. PLAVIX [Concomitant]
  37. MORPHINE [Concomitant]
     Dosage: 1 MG, UNK
  38. SPIRONOLACTONE [Concomitant]
  39. METHADONE HCL [Concomitant]
  40. VANCOMYCIN HCL [Concomitant]
  41. COMPAZINE [Concomitant]
     Dosage: 10 MG, UNK
  42. KLOR-CON [Concomitant]
  43. ALDACTONE [Concomitant]
  44. NITRO-BID [Concomitant]
  45. ACTOS [Concomitant]
  46. ECONOPRED [Concomitant]
     Dosage: 1%, 1GTT
  47. COMBIVENT [Concomitant]

REACTIONS (100)
  - DEFORMITY [None]
  - DECREASED INTEREST [None]
  - ONYCHOMYCOSIS [None]
  - VASODILATATION [None]
  - HEPATIC LESION [None]
  - PNEUMONIA [None]
  - ATELECTASIS [None]
  - DEPRESSED MOOD [None]
  - HYPERKERATOSIS [None]
  - FALL [None]
  - SPINAL COLUMN INJURY [None]
  - PHOTOPSIA [None]
  - BRONCHITIS CHRONIC [None]
  - HYPERLIPIDAEMIA [None]
  - PERIPHERAL VASCULAR DISORDER [None]
  - DIABETIC NEUROPATHY [None]
  - DYSPNOEA [None]
  - SKIN ATROPHY [None]
  - STAPHYLOMA [None]
  - OEDEMA [None]
  - VARICOSE VEIN [None]
  - AZOTAEMIA [None]
  - ASTHENIA [None]
  - HYPOKALAEMIA [None]
  - GASTROOESOPHAGEAL REFLUX DISEASE [None]
  - ANXIETY [None]
  - LUNG NEOPLASM [None]
  - THROMBOSIS [None]
  - RENAL DISORDER [None]
  - HYPOAESTHESIA [None]
  - ABDOMINAL PAIN UPPER [None]
  - PIGMENTATION DISORDER [None]
  - EXOSTOSIS [None]
  - MUCOSAL ULCERATION [None]
  - RIB FRACTURE [None]
  - FAECALOMA [None]
  - CONSTIPATION [None]
  - OSTEONECROSIS OF JAW [None]
  - TOOTHACHE [None]
  - LUNG INFILTRATION [None]
  - DIVERTICULUM INTESTINAL [None]
  - BONE LOSS [None]
  - CHOLELITHIASIS [None]
  - FATIGUE [None]
  - ALPHA HAEMOLYTIC STREPTOCOCCAL INFECTION [None]
  - RETINAL HAEMORRHAGE [None]
  - NEPHROGENIC ANAEMIA [None]
  - CARDIAC FAILURE CONGESTIVE [None]
  - ABDOMINAL PAIN [None]
  - DIZZINESS [None]
  - HYPOPHAGIA [None]
  - GLAUCOMA [None]
  - GOITRE [None]
  - TRACHEAL DEVIATION [None]
  - ANAEMIA [None]
  - BACK PAIN [None]
  - THYROID NEOPLASM [None]
  - DIARRHOEA [None]
  - VITAMIN D DEFICIENCY [None]
  - HYPOVOLAEMIA [None]
  - CHEST PAIN [None]
  - EMOTIONAL DISTRESS [None]
  - OSTEOMYELITIS [None]
  - PLEURAL EFFUSION [None]
  - CHOLECYSTITIS [None]
  - ORAL DISORDER [None]
  - MUCOSAL INFLAMMATION [None]
  - LIGAMENT SPRAIN [None]
  - LUNG CONSOLIDATION [None]
  - SERUM FERRITIN INCREASED [None]
  - BLOOD IRON DECREASED [None]
  - HYPERKALAEMIA [None]
  - SUPRAVENTRICULAR EXTRASYSTOLES [None]
  - NAUSEA [None]
  - PAIN [None]
  - LIFE EXPECTANCY SHORTENED [None]
  - CAROTID BRUIT [None]
  - PULMONARY MASS [None]
  - GALLBLADDER DISORDER [None]
  - ONYCHOCLASIS [None]
  - LIMB INJURY [None]
  - CONTUSION [None]
  - VISUAL FIELD DEFECT [None]
  - VITREOUS FLOATERS [None]
  - RENAL FAILURE ACUTE [None]
  - DEHYDRATION [None]
  - VOMITING [None]
  - MYALGIA [None]
  - VERTEBRAL ARTERY OCCLUSION [None]
  - GENERAL PHYSICAL HEALTH DETERIORATION [None]
  - VISUAL ACUITY REDUCED [None]
  - HEPATITIS [None]
  - MUSCULOSKELETAL CHEST PAIN [None]
  - ERYTHEMA [None]
  - SYNCOPE [None]
  - DIABETIC RETINOPATHY [None]
  - URINARY TRACT INFECTION [None]
  - OEDEMA PERIPHERAL [None]
  - GAIT DISTURBANCE [None]
  - BLADDER DISORDER [None]
